FAERS Safety Report 10670445 (Version 1)
Quarter: 2014Q4

REPORT INFORMATION
  Report Type: Spontaneous
  Country: FR (occurrence: FR)
  Receive Date: 20141223
  Receipt Date: 20141223
  Transmission Date: 20150529
  Serious: Yes (Hospitalization, Congenital Anomaly)
  Sender: FDA-Public Use
  Company Number: FR-SA-2014SA173114

PATIENT
  Sex: Male
  Weight: 2 kg

DRUGS (2)
  1. DUPHASTON [Suspect]
     Active Substance: DYDROGESTERONE
     Route: 064
  2. CLOMID [Suspect]
     Active Substance: CLOMIPHENE CITRATE
     Indication: OVULATION INDUCTION
     Route: 064

REACTIONS (3)
  - Hydrocephalus [Unknown]
  - Exophthalmos [Unknown]
  - Hypospadias [Unknown]

NARRATIVE: CASE EVENT DATE: 2012
